FAERS Safety Report 7244961-4 (Version None)
Quarter: 2011Q1

REPORT INFORMATION
  Report Type: 
  Country: None (occurrence: None)
  Receive Date: 20110126
  Receipt Date: 20110118
  Transmission Date: 20110831
  Serious: Yes (Other)
  Sender: FDA-Public Use
  Company Number: US-BAYER-2011-006408

PATIENT
  Age: 31 Year
  Sex: Female

DRUGS (1)
  1. MIRENA [Suspect]
     Indication: CONTRACEPTION
     Dosage: FREQUENCY: CONTINUOS
     Route: 015
     Dates: start: 20071220

REACTIONS (4)
  - CONVULSION [None]
  - GRAND MAL CONVULSION [None]
  - ROAD TRAFFIC ACCIDENT [None]
  - SOMNOLENCE [None]
